FAERS Safety Report 9639894 (Version 2)
Quarter: 2013Q4

REPORT INFORMATION
  Report Type: Spontaneous
  Country: US (occurrence: US)
  Receive Date: 20131023
  Receipt Date: 20131108
  Transmission Date: 20140711
  Serious: Yes (Death)
  Sender: FDA-Public Use
  Company Number: US-AMGEN-USASP2013073877

PATIENT
  Age: 102 Year
  Sex: Female

DRUGS (1)
  1. PROLIA [Suspect]
     Indication: OSTEOPOROSIS
     Route: 058

REACTIONS (4)
  - Skull fracture [Fatal]
  - Fall [Fatal]
  - Traumatic intracranial haemorrhage [Fatal]
  - Subarachnoid haemorrhage [Fatal]
